FAERS Safety Report 9222729 (Version 2)
Quarter: 2013Q2

REPORT INFORMATION
  Report Type: Spontaneous
  Country: JP (occurrence: JP)
  Receive Date: 20130410
  Receipt Date: 20130418
  Transmission Date: 20140414
  Serious: Yes (Hospitalization)
  Sender: FDA-Public Use
  Company Number: JP-PFIZER INC-2013111852

PATIENT
  Age: 80 Year
  Sex: Male

DRUGS (4)
  1. ZYVOX [Suspect]
     Indication: PNEUMONIA STAPHYLOCOCCAL
     Dosage: 1200 MG/DAY
     Route: 042
     Dates: start: 20130407
  2. ZOSYN [Suspect]
     Indication: BACTERAEMIA
     Dosage: 4.5 G, 3X/DAY
     Route: 042
     Dates: start: 20130401, end: 20130408
  3. ZOSYN [Suspect]
     Dosage: 0.5 MG, 2X/DAY
     Route: 042
     Dates: start: 20130409
  4. VANCOMYCIN HCL [Suspect]
     Indication: PNEUMONIA STAPHYLOCOCCAL
     Dosage: 1.0 G/DAY
     Route: 042
     Dates: start: 20130401, end: 20130407

REACTIONS (2)
  - Renal impairment [Not Recovered/Not Resolved]
  - Disseminated intravascular coagulation [None]
